FAERS Safety Report 9522923 (Version 1)
Quarter: 2013Q1

REPORT INFORMATION
  Report Type: Spontaneous
  Country: US (occurrence: None)
  Receive Date: 20130305
  Receipt Date: 20130305
  Transmission Date: 20140127
  Serious: Yes (Other)
  Sender: FDA-Public Use
  Company Number: 163-21880-12031187

PATIENT
  Age: 70 Year
  Sex: Male
  Weight: 86.18 kg

DRUGS (2)
  1. REVLIMID (LENALIDOMIDE) (CAPSULE) [Suspect]
     Indication: PLASMA CELL MYELOMA
     Dosage: QD X 21 D
     Route: 048
     Dates: start: 20120117
  2. BABY ASA (ACETYLSALICYLIC ACID) [Concomitant]

REACTIONS (1)
  - Platelet count decreased [None]
